FAERS Safety Report 7458122-7 (Version None)
Quarter: 2011Q2

REPORT INFORMATION
  Report Type: 
  Country: None (occurrence: None)
  Receive Date: 20110504
  Receipt Date: 20110427
  Transmission Date: 20111010
  Serious: Yes (Hospitalization)
  Sender: FDA-Public Use
  Company Number: DE-PFIZER INC-2011091369

PATIENT
  Age: 57 Year
  Sex: Male

DRUGS (8)
  1. TORISEL [Suspect]
     Indication: HEAD AND NECK CANCER
     Dosage: 25 MG, WEEKLY
     Route: 041
     Dates: start: 20101203, end: 20110303
  2. ELIDEL [Suspect]
     Dosage: UNK
     Route: 003
     Dates: start: 20100623
  3. PANTOPRAZOLE [Concomitant]
     Dosage: UNK
     Dates: start: 20050101
  4. METAMIZOLE [Concomitant]
     Dosage: UNK
     Dates: start: 20050101
  5. METROCREAM [Concomitant]
     Dosage: UNK
     Dates: start: 20100623
  6. LATICORT [Suspect]
     Dosage: UNK
     Route: 003
     Dates: start: 20100623
  7. BETAISODONA [Concomitant]
     Dosage: UNK
     Dates: start: 20100623
  8. AVELOX [Concomitant]
     Dosage: UNK
     Dates: start: 20110114

REACTIONS (2)
  - DEHYDRATION [None]
  - INFECTION [None]
